FAERS Safety Report 15494197 (Version 2)
Quarter: 2018Q4

REPORT INFORMATION
  Report Type: Spontaneous
  Country: ZA (occurrence: ZA)
  Receive Date: 20181012
  Receipt Date: 20181026
  Transmission Date: 20190205
  Serious: Yes (Hospitalization)
  Sender: FDA-Public Use
  Company Number: ZA-PFIZER INC-2018409677

PATIENT
  Age: 79 Year
  Sex: Female

DRUGS (6)
  1. DOVATE [Suspect]
     Active Substance: CLOBETASOL
     Dosage: 0.05 %, UNK
  2. PURATA [Suspect]
     Active Substance: OXAZEPAM
     Dosage: 30 MG, UNK
  3. LOMANOR [Suspect]
     Active Substance: AMLODIPINE BESYLATE
     Dosage: 5 MG, UNK
  4. DYNARB (METFORMIN HYDROCHLORIDE) [Suspect]
     Active Substance: METFORMIN HYDROCHLORIDE
     Dosage: 300 MG, UNK
  5. ADCO-ATENOLOL [Suspect]
     Active Substance: ATENOLOL
     Dosage: 100 MG, UNK
  6. BIOPREXUM PLUS [Suspect]
     Active Substance: INDAPAMIDE\PERINDOPRIL ARGININE
     Dosage: 10/2.5MG

REACTIONS (1)
  - Gastroenteritis viral [Recovered/Resolved]

NARRATIVE: CASE EVENT DATE: 201810
